FAERS Safety Report 22067845 (Version 1)
Quarter: 2023Q1

REPORT INFORMATION
  Report Type: Spontaneous
  Country: EC (occurrence: EC)
  Receive Date: 20230307
  Receipt Date: 20230307
  Transmission Date: 20230418
  Serious: Yes (Death)
  Sender: FDA-Public Use
  Company Number: EC-002147023-NVSC2023EC051446

PATIENT
  Sex: Female

DRUGS (1)
  1. ELTROMBOPAG OLAMINE [Suspect]
     Active Substance: ELTROMBOPAG OLAMINE
     Indication: Product used for unknown indication
     Dosage: 50 MG, QMO (MONTHLY/ EVERY 28 DAYS (TABLETSX 28))
     Route: 065
     Dates: start: 20221215

REACTIONS (1)
  - Death [Fatal]
